FAERS Safety Report 4684363-8 (Version None)
Quarter: 2005Q2

REPORT INFORMATION
  Report Type: 
  Country: None (occurrence: None)
  Receive Date: 20050531
  Receipt Date: 20040824
  Transmission Date: 20051028
  Serious: Yes (Hospitalization, Other)
  Sender: FDA-Public Use
  Company Number: 200415921US

PATIENT
  Age: 82 Year
  Sex: Male
  Weight: 66.8 kg

DRUGS (8)
  1. LOVENOX [Suspect]
     Indication: ATRIAL FIBRILLATION
     Dosage: INJ
     Dates: start: 20040729, end: 20040731
  2. LOVENOX [Suspect]
     Indication: HEART VALVE REPLACEMENT
     Dosage: INJ
     Dates: start: 20040729, end: 20040731
  3. LOVENOX [Suspect]
     Indication: PROPHYLAXIS
     Dosage: INJ
     Dates: start: 20040729, end: 20040731
  4. ASCORBIC ACID [Concomitant]
  5. DILTIAZEM [Concomitant]
  6. LISINOPRIL [Concomitant]
  7. IRON [Concomitant]
  8. HEPARIN [Concomitant]

REACTIONS (1)
  - ABDOMINAL HAEMATOMA [None]
